FAERS Safety Report 23609958 (Version 1)
Quarter: 2024Q1

REPORT INFORMATION
  Report Type: Report from Study
  Country: US (occurrence: US)
  Receive Date: 20240308
  Receipt Date: 20240308
  Transmission Date: 20240410
  Serious: Yes (Other)
  Sender: FDA-Public Use
  Company Number: US-ALXN-A202314004AA

PATIENT
  Age: 66 Year
  Sex: Male

DRUGS (2)
  1. ULTOMIRIS [Suspect]
     Active Substance: RAVULIZUMAB-CWVZ
     Indication: Paroxysmal nocturnal haemoglobinuria
     Dosage: UNK
     Route: 065
  2. SOLIRIS [Suspect]
     Active Substance: ECULIZUMAB
     Indication: Paroxysmal nocturnal haemoglobinuria
     Dosage: UNK
     Route: 042

REACTIONS (7)
  - Haemolysis [Not Recovered/Not Resolved]
  - Depression [Unknown]
  - Movement disorder [Unknown]
  - International normalised ratio increased [Unknown]
  - Gait inability [Unknown]
  - Lymphoedema [Unknown]
  - Dysstasia [Unknown]

NARRATIVE: CASE EVENT DATE: 20230216
